FAERS Safety Report 15672946 (Version 2)
Quarter: 2019Q4

REPORT INFORMATION
  Report Type: Report from Study
  Country: US (occurrence: US)
  Receive Date: 20181129
  Receipt Date: 20191127
  Transmission Date: 20200122
  Serious: No
  Sender: FDA-Public Use
  Company Number: US-TESARO-2018-TSO0949-US

PATIENT
  Sex: Female
  Weight: 61.22 kg

DRUGS (2)
  1. NIRAPARIB CAPSULE [Suspect]
     Active Substance: NIRAPARIB
     Indication: PRODUCT USED FOR UNKNOWN INDICATION
     Dosage: 200 MG, QD
     Route: 048
     Dates: start: 201802
  2. NIRAPARIB CAPSULE [Suspect]
     Active Substance: NIRAPARIB
     Dosage: 200 MG, QD
     Route: 048
     Dates: start: 20180914

REACTIONS (7)
  - Fatigue [Unknown]
  - Sleep disorder [Unknown]
  - Joint injury [Unknown]
  - Dry mouth [Not Recovered/Not Resolved]
  - Bone pain [Unknown]
  - Insomnia [Not Recovered/Not Resolved]
  - Constipation [Unknown]
